FAERS Safety Report 8139219-5 (Version None)
Quarter: 2012Q1

REPORT INFORMATION
  Report Type: 
  Country: None (occurrence: None)
  Receive Date: 20120215
  Receipt Date: 20120209
  Transmission Date: 20120608
  Serious: Yes (Other)
  Sender: FDA-Public Use
  Company Number: US-PFIZER INC-2012019046

PATIENT
  Sex: Female
  Weight: 68.5 kg

DRUGS (5)
  1. CALCIUM [Concomitant]
     Dosage: 1200 MG, DAILY
  2. ACETYLSALICYLIC ACID [Concomitant]
     Dosage: 81 MG, DAILY
  3. PREMARIN [Suspect]
     Indication: MENOPAUSE
     Dosage: 0.625 MG, 1X/DAY
     Route: 048
  4. VITAMIN D [Concomitant]
     Dosage: 1000 IU, DAILY
  5. ACETAMINOPHEN [Concomitant]
     Indication: OSTEITIS DEFORMANS
     Dosage: UNK, AS NEEDED

REACTIONS (1)
  - CUTANEOUS LUPUS ERYTHEMATOSUS [None]
